FAERS Safety Report 13551402 (Version 2)
Quarter: 2017Q2

REPORT INFORMATION
  Report Type: Spontaneous
  Country: US (occurrence: US)
  Receive Date: 20170516
  Receipt Date: 20170525
  Transmission Date: 20170830
  Serious: Yes (Hospitalization, Other)
  Sender: FDA-Public Use
  Company Number: US-VISTAPHARM, INC.-VER201705-000037

PATIENT
  Age: 34 Year
  Sex: Male

DRUGS (2)
  1. HYDROCODONE AND ACETAMINOPHEN [Suspect]
     Active Substance: ACETAMINOPHEN\HYDROCODONE
     Indication: OROPHARYNGEAL PAIN
  2. HYDROCODONE AND ACETAMINOPHEN [Suspect]
     Active Substance: ACETAMINOPHEN\HYDROCODONE
     Indication: FISTULA

REACTIONS (4)
  - Necrosis [Recovered/Resolved]
  - Nasal necrosis [Recovered/Resolved]
  - Drug use disorder [Recovered/Resolved]
  - Dysphagia [Recovered/Resolved]
